FAERS Safety Report 8521445-4 (Version None)
Quarter: 2012Q3

REPORT INFORMATION
  Report Type: 
  Country: None (occurrence: None)
  Receive Date: 20120719
  Receipt Date: 20120710
  Transmission Date: 20120928
  Serious: Yes (Other)
  Sender: FDA-Public Use
  Company Number: US-ACTELION-A-US2012-68557

PATIENT

DRUGS (3)
  1. REMODULIN [Concomitant]
  2. SILDENAFIL [Concomitant]
  3. TRACLEER [Suspect]
     Indication: PULMONARY ARTERIAL HYPERTENSION
     Dosage: UNK
     Route: 048

REACTIONS (4)
  - EYE MOVEMENT DISORDER [None]
  - TREMOR [None]
  - CYANOSIS [None]
  - CONVULSION [None]
